FAERS Safety Report 9380293 (Version 1)
Quarter: 2013Q3

REPORT INFORMATION
  Report Type: Spontaneous
  Country: US (occurrence: None)
  Receive Date: 20130701
  Receipt Date: 20130701
  Transmission Date: 20140515
  Serious: Yes (Life-Threatening, Hospitalization, Other)
  Sender: FDA-Public Use
  Company Number: None

PATIENT
  Age: 54 Year
  Sex: Female
  Weight: 103.42 kg

DRUGS (5)
  1. TRAMADOL [Suspect]
  2. FUROSEMIDE [Suspect]
  3. LORATADINE [Suspect]
  4. ZANAX [Suspect]
  5. LEVOTHROID [Concomitant]

REACTIONS (10)
  - Vertigo [None]
  - Diarrhoea [None]
  - Malaise [None]
  - Vision blurred [None]
  - Cardiac disorder [None]
  - Epistaxis [None]
  - Dysgeusia [None]
  - Parosmia [None]
  - Nervousness [None]
  - Confusional state [None]
